FAERS Safety Report 12614086 (Version 1)
Quarter: 2016Q3

REPORT INFORMATION
  Report Type: Report from Study
  Country: CO (occurrence: CO)
  Receive Date: 20160802
  Receipt Date: 20160802
  Transmission Date: 20161109
  Serious: Yes (Death, Other)
  Sender: FDA-Public Use
  Company Number: CO-AMGEN-COLSL2016098672

PATIENT
  Age: 54 Year
  Sex: Female

DRUGS (1)
  1. VECTIBIX [Suspect]
     Active Substance: PANITUMUMAB
     Indication: COLORECTAL CANCER METASTATIC
     Dosage: UNK UNK, FORTNIGHTLY
     Route: 042
     Dates: start: 20160523

REACTIONS (1)
  - Death [Fatal]

NARRATIVE: CASE EVENT DATE: 20160621
